FAERS Safety Report 5893128-0 (Version None)
Quarter: 2008Q3

REPORT INFORMATION
  Report Type: 
  Country: None (occurrence: None)
  Receive Date: 20080923
  Receipt Date: 20070815
  Transmission Date: 20090109
  Serious: No
  Sender: FDA-Public Use
  Company Number: US-ASTRAZENECA-2007UW19732

PATIENT
  Age: 30 Year
  Sex: Female
  Weight: 60.8 kg

DRUGS (2)
  1. SEROQUEL [Suspect]
     Indication: BIPOLAR DISORDER
     Route: 048
     Dates: start: 20070815
  2. SEROQUEL [Suspect]
     Route: 048

REACTIONS (5)
  - EUPHORIC MOOD [None]
  - ILL-DEFINED DISORDER [None]
  - MEDICATION ERROR [None]
  - PALPITATIONS [None]
  - SEDATION [None]
